FAERS Safety Report 23926122 (Version 1)
Quarter: 2024Q2

REPORT INFORMATION
  Report Type: Spontaneous
  Country: US (occurrence: US)
  Receive Date: 20240531
  Receipt Date: 20240531
  Transmission Date: 20240716
  Serious: Yes (Other)
  Sender: FDA-Public Use
  Company Number: US-Calliditas-2024CAL00867

PATIENT
  Age: 30 Year
  Sex: Male
  Weight: 101.6 kg

DRUGS (1)
  1. TARPEYO [Suspect]
     Active Substance: BUDESONIDE
     Indication: Chronic kidney disease
     Route: 048
     Dates: start: 20240313

REACTIONS (3)
  - Central serous chorioretinopathy [Unknown]
  - Weight decreased [Unknown]
  - Off label use [Unknown]
